FAERS Safety Report 10469380 (Version 1)
Quarter: 2014Q3

REPORT INFORMATION
  Report Type: Spontaneous
  Country: US (occurrence: None)
  Receive Date: 20140922
  Receipt Date: 20140922
  Transmission Date: 20150326
  Serious: Yes (Other)
  Sender: FDA-Public Use
  Company Number: None

PATIENT
  Age: 7 Year
  Sex: Female
  Weight: 24.95 kg

DRUGS (1)
  1. DEPAKOTE [Suspect]
     Active Substance: DIVALPROEX SODIUM
     Indication: SEVERE MYOCLONIC EPILEPSY OF INFANCY
     Dosage: 2 PILLS ?AT BEDTIME?TAKEN BY MOUTH
     Route: 048
     Dates: start: 20140917, end: 20140919

REACTIONS (4)
  - Product substitution issue [None]
  - Vomiting [None]
  - Generalised tonic-clonic seizure [None]
  - Product quality issue [None]

NARRATIVE: CASE EVENT DATE: 20140918
